FAERS Safety Report 9291732 (Version 2)
Quarter: 2013Q3

REPORT INFORMATION
  Report Type: Spontaneous
  Country: US (occurrence: US)
  Receive Date: 20130516
  Receipt Date: 20130701
  Transmission Date: 20140515
  Serious: Yes (Hospitalization, Other)
  Sender: FDA-Public Use
  Company Number: US-ROCHE-1160754

PATIENT
  Age: 15 Year
  Sex: Male
  Weight: 88.53 kg

DRUGS (3)
  1. ACCUTANE [Suspect]
     Indication: ACNE
     Route: 048
     Dates: start: 20001121
  2. ACCUTANE [Suspect]
     Route: 048
     Dates: start: 20010109
  3. ACCUTANE [Suspect]
     Route: 048
     Dates: start: 20010410, end: 200110

REACTIONS (9)
  - Crohn^s disease [Unknown]
  - Intestinal obstruction [Unknown]
  - Inflammatory bowel disease [Unknown]
  - Emotional distress [Unknown]
  - Intestinal haemorrhage [Unknown]
  - Xerosis [Unknown]
  - Lip dry [Unknown]
  - Blood triglycerides increased [Unknown]
  - Acne [Unknown]
